FAERS Safety Report 4390753-3 (Version None)
Quarter: 2004Q3

REPORT INFORMATION
  Report Type: 
  Country: None (occurrence: None)
  Receive Date: 20040706
  Receipt Date: 20040706
  Transmission Date: 20050211
  Serious: Yes (Hospitalization)
  Sender: FDA-Public Use
  Company Number: None

PATIENT
  Age: 42 Year
  Sex: Male
  Weight: 74.8435 kg

DRUGS (16)
  1. GEMCITABINE [Suspect]
     Indication: COLON CANCER METASTATIC
     Dosage: 144 MG IV Q 2 WKS
     Route: 042
     Dates: start: 20040323
  2. GEMCITABINE [Suspect]
     Indication: COLON CANCER METASTATIC
     Dosage: 144 MG IV Q 2 WKS
     Route: 042
     Dates: start: 20040406
  3. GEMCITABINE [Suspect]
     Indication: COLON CANCER METASTATIC
     Dosage: 144 MG IV Q 2 WKS
     Route: 042
     Dates: start: 20040428
  4. GEMCITABINE [Suspect]
     Indication: COLON CANCER METASTATIC
     Dosage: 144 MG IV Q 2 WKS
     Route: 042
     Dates: start: 20040511
  5. IRINOTECAN [Suspect]
     Indication: COLON CANCER METASTATIC
     Dosage: 172 MG IV Q 2 WKS
     Route: 042
     Dates: start: 20040324
  6. IRINOTECAN [Suspect]
     Indication: COLON CANCER METASTATIC
     Dosage: 172 MG IV Q 2 WKS
     Route: 042
     Dates: start: 20040407
  7. IRINOTECAN [Suspect]
     Indication: COLON CANCER METASTATIC
     Dosage: 172 MG IV Q 2 WKS
     Route: 042
     Dates: start: 20040429
  8. IRINOTECAN [Suspect]
     Indication: COLON CANCER METASTATIC
     Dosage: 172 MG IV Q 2 WKS
     Route: 042
     Dates: start: 20040512
  9. PROTONIX [Concomitant]
  10. REGLAN [Concomitant]
  11. OXYCODONE HCL [Concomitant]
  12. IBUPROFEN [Concomitant]
  13. IRON GLUCONOTE [Concomitant]
  14. COUMADIN [Concomitant]
  15. CLONIDINE HCL [Concomitant]
  16. LOVENOX [Concomitant]

REACTIONS (4)
  - ABSCESS [None]
  - DISEASE PROGRESSION [None]
  - FLUID RETENTION [None]
  - MEDICAL DEVICE COMPLICATION [None]
